FAERS Safety Report 8319491-9 (Version None)
Quarter: 2012Q2

REPORT INFORMATION
  Report Type: 
  Country: None (occurrence: None)
  Receive Date: 20120427
  Receipt Date: 20120424
  Transmission Date: 20120825
  Serious: Yes (Death)
  Sender: FDA-Public Use
  Company Number: CO-BIOMARINP-002508

PATIENT
  Age: 8 Year
  Sex: Male

DRUGS (1)
  1. NAGLAZYME [Suspect]
     Indication: MUCOPOLYSACCHARIDOSIS VI
     Route: 041

REACTIONS (2)
  - TRACHEOSTOMY MALFUNCTION [None]
  - ASPHYXIA [None]
